FAERS Safety Report 11717178 (Version 2)
Quarter: 2015Q4

REPORT INFORMATION
  Report Type: Spontaneous
  Country: US (occurrence: US)
  Receive Date: 20151104
  Receipt Date: 20151120
  Transmission Date: 20160304
  Serious: No
  Sender: FDA-Public Use
  Company Number: US-ELI_LILLY_AND_COMPANY-US201104000674

PATIENT
  Age: 66 Year
  Sex: Female

DRUGS (1)
  1. FORTEO [Suspect]
     Active Substance: TERIPARATIDE
     Indication: OSTEOPOROSIS
     Dosage: 20 UG, DAILY (1/D)
     Route: 065
     Dates: start: 20110309, end: 20130323

REACTIONS (11)
  - Head titubation [Unknown]
  - Muscle spasms [Unknown]
  - Medication error [Recovered/Resolved]
  - Drug ineffective [Unknown]
  - Contusion [Unknown]
  - Dizziness [Unknown]
  - Presyncope [Unknown]
  - Abdominal discomfort [Unknown]
  - Injection site pain [Unknown]
  - Urticaria [Unknown]
  - Hyperhidrosis [Unknown]

NARRATIVE: CASE EVENT DATE: 20130308
